FAERS Safety Report 7229731-5 (Version None)
Quarter: 2011Q1

REPORT INFORMATION
  Report Type: 
  Country: None (occurrence: None)
  Receive Date: 20110117
  Receipt Date: 20110107
  Transmission Date: 20110831
  Serious: Yes (Other)
  Sender: FDA-Public Use
  Company Number: US-SANOFI-AVENTIS-2010SA066525

PATIENT

DRUGS (2)
  1. LANTUS [Suspect]
     Route: 058
  2. SOLOSTAR [Suspect]

REACTIONS (4)
  - PRODUCT QUALITY ISSUE [None]
  - DEVICE BREAKAGE [None]
  - DEVICE COMPONENT ISSUE [None]
  - DEVICE MALFUNCTION [None]
